FAERS Safety Report 16417359 (Version 2)
Quarter: 2020Q1

REPORT INFORMATION
  Report Type: Report from Study
  Country: CA (occurrence: CA)
  Receive Date: 20190611
  Receipt Date: 20200102
  Transmission Date: 20200409
  Serious: Yes (Other)
  Sender: FDA-Public Use
  Company Number: CA-JNJFOC-20190612527

PATIENT
  Age: 50 Year
  Sex: Female
  Weight: 70 kg

DRUGS (1)
  1. REMICADE [Suspect]
     Active Substance: INFLIXIMAB
     Indication: CROHN^S DISEASE
     Route: 042

REACTIONS (5)
  - Glaucoma [Not Recovered/Not Resolved]
  - Diarrhoea [Unknown]
  - Influenza [Unknown]
  - Muscle spasms [Unknown]
  - Vomiting [Unknown]

NARRATIVE: CASE EVENT DATE: 20190521
